FAERS Safety Report 16922869 (Version 1)
Quarter: 2019Q4

REPORT INFORMATION
  Report Type: Spontaneous
  Country: CA (occurrence: CA)
  Receive Date: 20191016
  Receipt Date: 20191016
  Transmission Date: 20200122
  Serious: Yes (Other)
  Sender: FDA-Public Use
  Company Number: CA-TEVA-2019-CA-1122677

PATIENT
  Age: 15 Month
  Sex: Female
  Weight: 7 kg

DRUGS (3)
  1. BOSENTAN MONOHYDRATE [Suspect]
     Active Substance: BOSENTAN
     Indication: PRODUCT USED FOR UNKNOWN INDICATION
     Route: 065
  2. SILDENAFIL CITRATE. [Suspect]
     Active Substance: SILDENAFIL CITRATE
     Indication: PRODUCT USED FOR UNKNOWN INDICATION
     Route: 065
  3. TREPROSTINIL SODIUM [Suspect]
     Active Substance: TREPROSTINIL SODIUM
     Indication: PULMONARY HYPERTENSION
     Route: 058

REACTIONS (10)
  - Dry skin [Unknown]
  - Nausea [Unknown]
  - Oxygen saturation decreased [Unknown]
  - Product use issue [Unknown]
  - Vomiting [Unknown]
  - Dizziness [Unknown]
  - Pruritus [Unknown]
  - Diarrhoea [Unknown]
  - Flushing [Unknown]
  - Oedema peripheral [Unknown]
